FAERS Safety Report 23468963 (Version 2)
Quarter: 2024Q1

REPORT INFORMATION
  Report Type: Spontaneous
  Country: US (occurrence: US)
  Receive Date: 20240202
  Receipt Date: 20240313
  Transmission Date: 20240410
  Serious: Yes (Other)
  Sender: FDA-Public Use
  Company Number: US-TAKEDA-2024TUS010294

PATIENT
  Sex: Female
  Weight: 71.202 kg

DRUGS (4)
  1. ENTYVIO [Suspect]
     Active Substance: VEDOLIZUMAB
     Indication: Colitis ulcerative
     Dosage: UNK
     Route: 042
     Dates: start: 202003
  2. ENTYVIO [Suspect]
     Active Substance: VEDOLIZUMAB
     Indication: Colitis ulcerative
     Dosage: UNK UNK, Q2WEEKS
     Route: 058
  3. XIFAXAN [Concomitant]
     Active Substance: RIFAXIMIN
     Indication: Inflammatory bowel disease
     Dosage: 550 MILLIGRAM, TID
  4. ZYRTEC [Concomitant]
     Active Substance: CETIRIZINE HYDROCHLORIDE
     Indication: Hypersensitivity
     Dosage: 10 MILLIGRAM, QD
     Route: 048

REACTIONS (1)
  - Injection site reaction [Recovered/Resolved]
